FAERS Safety Report 20968811 (Version 1)
Quarter: 2022Q2

REPORT INFORMATION
  Report Type: Report from Study
  Country: NL (occurrence: NL)
  Receive Date: 20220616
  Receipt Date: 20220616
  Transmission Date: 20220721
  Serious: Yes (Other)
  Sender: FDA-Public Use
  Company Number: NL-CHEMOCENTRYX, INC.-2022NLCCXI0164

PATIENT

DRUGS (1)
  1. TAVNEOS [Suspect]
     Active Substance: AVACOPAN
     Indication: Anti-neutrophil cytoplasmic antibody positive vasculitis
     Dosage: UNK
     Route: 048
     Dates: start: 20211126, end: 20220405

REACTIONS (1)
  - Renal vasculitis [Not Recovered/Not Resolved]

NARRATIVE: CASE EVENT DATE: 20220405
